FAERS Safety Report 9192068 (Version 1)
Quarter: 2013Q1

REPORT INFORMATION
  Report Type: Spontaneous
  Country: US (occurrence: None)
  Receive Date: 20130325
  Receipt Date: 20130325
  Transmission Date: 20140127
  Serious: Yes (Other)
  Sender: FDA-Public Use
  Company Number: SYM-2013-01824

PATIENT
  Sex: 0

DRUGS (2)
  1. FLUOROURACIL (FLUOROURACIL) [Suspect]
     Indication: NASOPHARYNGEAL CANCER
     Dosage: 4 G/M2
  2. CISPLATIN (CISPLATIN) (UNKNOWN) (CISPLATIN) [Concomitant]

REACTIONS (1)
  - Bone marrow failure [None]
